FAERS Safety Report 6613844-2 (Version None)
Quarter: 2010Q1

REPORT INFORMATION
  Report Type: 
  Country: None (occurrence: None)
  Receive Date: 20100225
  Receipt Date: 20100210
  Transmission Date: 20100710
  Serious: Yes (Disabling, Other)
  Sender: FDA-Public Use
  Company Number: 2010000520

PATIENT
  Age: 51 Year
  Sex: Female
  Weight: 61 kg

DRUGS (2)
  1. TARCEVA [Suspect]
     Indication: NON-SMALL CELL LUNG CANCER
     Dosage: (150MG), ORAL
     Route: 048
     Dates: start: 20090601, end: 20100106
  2. OXYCONTIN [Concomitant]

REACTIONS (3)
  - ALOPECIA SCARRING [None]
  - RASH [None]
  - SKIN DISORDER [None]
